FAERS Safety Report 22652881 (Version 1)
Quarter: 2023Q2

REPORT INFORMATION
  Report Type: Spontaneous
  Country: US (occurrence: US)
  Receive Date: 20230629
  Receipt Date: 20230629
  Transmission Date: 20230722
  Serious: No
  Sender: FDA-Public Use
  Company Number: US-JNJFOC-20230625781

PATIENT
  Sex: Female

DRUGS (3)
  1. PEPCID AC [Suspect]
     Active Substance: FAMOTIDINE
     Indication: Gastrooesophageal reflux disease
     Dosage: ONE TABLET. ONCE A DAY, BUT I WAS ADVISED BY MY DOCTOR TO TAKE ONE IN THE MORNING AND ONE IN THE NIG
     Route: 048
     Dates: start: 20230609
  2. PEPCID AC [Suspect]
     Active Substance: FAMOTIDINE
     Indication: Abdominal pain upper
  3. PEPCID AC [Suspect]
     Active Substance: FAMOTIDINE
     Indication: Abdominal discomfort

REACTIONS (1)
  - Off label use [Unknown]

NARRATIVE: CASE EVENT DATE: 20230609
